FAERS Safety Report 4817423-9 (Version None)
Quarter: 2005Q4

REPORT INFORMATION
  Report Type: 
  Country: None (occurrence: None)
  Receive Date: 20051031
  Receipt Date: 20051017
  Transmission Date: 20060501
  Serious: Yes (Hospitalization)
  Sender: FDA-Public Use
  Company Number: 2005143390

PATIENT
  Age: 50 Year
  Sex: Female
  Weight: 55 kg

DRUGS (4)
  1. MEDROL ACETATE [Suspect]
     Indication: CANCER PAIN
     Dosage: ORAL
     Route: 048
     Dates: start: 20050901
  2. SU- 011, 248 [Suspect]
     Indication: RENAL CELL CARCINOMA STAGE UNSPECIFIED
     Dosage: (50 MG,1 IN 1 D), ORAL
     Route: 048
     Dates: start: 20051016
  3. DURAGESIC-100 [Suspect]
     Indication: CANCER PAIN
     Dosage: TOPICAL
     Route: 061
     Dates: start: 20050901
  4. CO-EFFERALGAN (CODEINE PHOSPHATE, PARACETAMOL) [Suspect]
     Indication: CANCER PAIN
     Dosage: ORAL
     Route: 048
     Dates: start: 20050701

REACTIONS (1)
  - CONSTIPATION [None]
